FAERS Safety Report 12922636 (Version 1)
Quarter: 2016Q4

REPORT INFORMATION
  Report Type: Report from Study
  Country: GB (occurrence: GB)
  Receive Date: 20161109
  Receipt Date: 20161109
  Transmission Date: 20170207
  Serious: Yes (Other)
  Sender: FDA-Public Use
  Company Number: GB-VIIV HEALTHCARE LIMITED-GB2016GSK156438

PATIENT

DRUGS (5)
  1. VALIUM [Suspect]
     Active Substance: DIAZEPAM
     Indication: SLEEP DISORDER
  2. RITONAVIR. [Suspect]
     Active Substance: RITONAVIR
     Indication: PRODUCT USED FOR UNKNOWN INDICATION
  3. SERTRALINE [Suspect]
     Active Substance: SERTRALINE HYDROCHLORIDE
     Indication: SLEEP DISORDER
  4. ZOLPIDEM [Suspect]
     Active Substance: ZOLPIDEM\ZOLPIDEM TARTRATE
     Indication: SLEEP DISORDER
  5. DOLUTEGRAVIR [Suspect]
     Active Substance: DOLUTEGRAVIR
     Indication: PRODUCT USED FOR UNKNOWN INDICATION

REACTIONS (10)
  - Diabetes mellitus [Unknown]
  - Neuropathy peripheral [Unknown]
  - Osteopenia [Unknown]
  - Fanconi syndrome [Unknown]
  - Stress [Unknown]
  - Mental disorder [Unknown]
  - Abnormal dreams [Unknown]
  - Sleep disorder [Unknown]
  - Sexual dysfunction [Unknown]
  - Nervous system disorder [Unknown]
